FAERS Safety Report 13748478 (Version 3)
Quarter: 2017Q4

REPORT INFORMATION
  Report Type: Spontaneous
  Country: US (occurrence: US)
  Receive Date: 20170713
  Receipt Date: 20171020
  Transmission Date: 20180320
  Serious: No
  Sender: FDA-Public Use
  Company Number: US-PFIZER INC-2017300526

PATIENT
  Age: 69 Year
  Sex: Female
  Weight: 81 kg

DRUGS (13)
  1. VITAMIN B12 [Concomitant]
     Active Substance: CYANOCOBALAMIN
     Dosage: 250 UG, DAILY
     Route: 048
  2. ROXICODONE [Concomitant]
     Active Substance: OXYCODONE HYDROCHLORIDE
     Indication: PAIN
     Dosage: 5 MG, AS NEEDED (EVERY 4 HOURS AS NEEDED)
     Route: 048
  3. VITAMIN C [Concomitant]
     Active Substance: ASCORBIC ACID
     Dosage: 1000 MG, UNK
     Route: 048
  4. IBRANCE [Suspect]
     Active Substance: PALBOCICLIB
     Dosage: 100 MG, UNK
  5. SELENIUM [Concomitant]
     Active Substance: SELENIUM
     Dosage: 200 UG, UNK
     Route: 048
  6. IBRANCE [Suspect]
     Active Substance: PALBOCICLIB
     Indication: BREAST CANCER METASTATIC
     Dosage: 125 MG, UNK
     Route: 048
     Dates: start: 201702
  7. LANTUS [Concomitant]
     Active Substance: INSULIN GLARGINE
     Indication: DIABETES MELLITUS
     Dosage: 10 MG, 1X/DAY (AT NIGHT SINGLE DOSE)
  8. LANTUS [Concomitant]
     Active Substance: INSULIN GLARGINE
     Dosage: 10 IU, 1X/DAY (AT BEDTIME)
     Route: 058
  9. VITAMIN B-6 [Concomitant]
     Active Substance: PYRIDOXINE
     Dosage: 100 MG, DAILY
     Route: 048
  10. FASLODEX [Suspect]
     Active Substance: FULVESTRANT
     Dosage: UNK
     Dates: start: 201702
  11. LANTUS [Concomitant]
     Active Substance: INSULIN GLARGINE
     Dosage: UNK, DAILY (10 TO 25 UNITS DEPENDING ON BLOOD SUGAR READINGS)
     Dates: start: 2001
  12. TURMERIC CURCUMIN PO [Concomitant]
     Dosage: 825 MG, UNK
     Route: 048
  13. VITAMIN D3 [Concomitant]
     Active Substance: CHOLECALCIFEROL
     Indication: VITAMIN D DEFICIENCY
     Dosage: 5000 IU, DAILY
     Route: 048

REACTIONS (14)
  - Urine odour abnormal [Unknown]
  - Chills [Unknown]
  - Red blood cell count decreased [Recovering/Resolving]
  - Urinary tract infection [Unknown]
  - Pain [Unknown]
  - White blood cell count decreased [Recovering/Resolving]
  - Dysuria [Recovering/Resolving]
  - Fatigue [Recovered/Resolved]
  - Weight increased [Unknown]
  - Haemoglobin decreased [Unknown]
  - Platelet count decreased [Unknown]
  - Alopecia [Unknown]
  - Neutrophil count decreased [Unknown]
  - Haematocrit decreased [Unknown]

NARRATIVE: CASE EVENT DATE: 201702
